FAERS Safety Report 6163283 (Version 1)
Quarter: 2020Q3

REPORT INFORMATION
  Report Type: Spontaneous
  Country: GB (occurrence: None)
  Receive Date: 20061020
  Receipt Date: 20061020
  Transmission Date: 20201105
  Serious: Yes (Hospitalization, Other)
  Sender: FDA-Public Use
  Company Number: 30319

PATIENT
  Age: 18 Year
  Sex: Female

DRUGS (3)
  1. CEFUROXIME AXETIL. [Suspect]
     Active Substance: CEFUROXIME AXETIL
  2. ETHER. [Suspect]
     Active Substance: ETHER
     Indication: ANAESTHESIA
  3. METRONIDAZOLE. [Suspect]
     Active Substance: METRONIDAZOLE
     Indication: PYREXIA

REACTIONS (5)
  - Vaginal haemorrhage [None]
  - Abortion spontaneous [None]
  - Appendicectomy [None]
  - Maternal exposure during pregnancy [None]
  - Acute respiratory distress syndrome [None]
